FAERS Safety Report 14344094 (Version 1)
Quarter: 2018Q1

REPORT INFORMATION
  Report Type: Spontaneous
  Country: US (occurrence: US)
  Receive Date: 20180102
  Receipt Date: 20180102
  Transmission Date: 20180509
  Serious: Yes (Other)
  Sender: FDA-Public Use
  Company Number: US-SHIRE-US201735055

PATIENT
  Sex: Female

DRUGS (1)
  1. CINRYZE [Suspect]
     Active Substance: HUMAN C1-ESTERASE INHIBITOR
     Indication: HEREDITARY ANGIOEDEMA
     Dosage: 1000 UNK, UNK
     Route: 065
     Dates: start: 20170902

REACTIONS (4)
  - Sinusitis [Unknown]
  - Ill-defined disorder [Unknown]
  - Cystitis [Unknown]
  - Malaise [Unknown]
